FAERS Safety Report 12349783 (Version 1)
Quarter: 2016Q2

REPORT INFORMATION
  Report Type: Spontaneous
  Country: US (occurrence: US)
  Receive Date: 20160510
  Receipt Date: 20160510
  Transmission Date: 20160815
  Serious: Yes (Other)
  Sender: FDA-Public Use
  Company Number: US-JNJCP-30000335309

PATIENT
  Sex: Female
  Weight: 66 kg

DRUGS (2)
  1. AVEENO ABSOLUTELY AGELESS DAILY MOISTURIZER BROAD SPECTRUM SPF30 [Suspect]
     Active Substance: AVOBENZONE\HOMOSALATE\OCTISALATE\OCTOCRYLENE
     Indication: DRY SKIN PROPHYLAXIS
     Dosage: IN THE MORNING AND AFTERNOON (TWICE DAILY)
     Route: 061
     Dates: start: 20160422, end: 20160422
  2. BYSTOLIC [Concomitant]
     Active Substance: NEBIVOLOL HYDROCHLORIDE
     Indication: HYPERTENSION
     Dosage: 5 MG ONCE DAILY FOR TWO YEARS

REACTIONS (3)
  - Application site inflammation [Not Recovered/Not Resolved]
  - Application site swelling [Not Recovered/Not Resolved]
  - Application site exfoliation [Not Recovered/Not Resolved]

NARRATIVE: CASE EVENT DATE: 201604
